FAERS Safety Report 21104776 (Version 1)
Quarter: 2022Q3

REPORT INFORMATION
  Report Type: Spontaneous
  Country: US (occurrence: None)
  Receive Date: 20220719
  Receipt Date: 20220719
  Transmission Date: 20221027
  Serious: Yes (Other)
  Sender: FDA-Public Use
  Company Number: None

PATIENT
  Sex: Female

DRUGS (1)
  1. RITUXIMAB [Suspect]
     Active Substance: RITUXIMAB
     Indication: Pemphigus
     Route: 042

REACTIONS (5)
  - Dyspnoea [None]
  - Chest discomfort [None]
  - Cough [None]
  - Gastrooesophageal reflux disease [None]
  - Infusion related reaction [None]

NARRATIVE: CASE EVENT DATE: 20220716
